FAERS Safety Report 4327250-7 (Version None)
Quarter: 2004Q1

REPORT INFORMATION
  Report Type: 
  Country: None (occurrence: None)
  Receive Date: 20040322
  Receipt Date: 20040116
  Transmission Date: 20041129
  Serious: No
  Sender: FDA-Public Use
  Company Number: NSADSS2003018729

PATIENT
  Age: 23 Year
  Sex: Female
  Weight: 70.7611 kg

DRUGS (9)
  1. ORTHO TRI-CYCLEN LO [Suspect]
     Indication: CONTRACEPTION
     Dosage: 1 DOSE (S), ORAL
     Route: 048
  2. TYLENOL [Concomitant]
  3. TYLENOL WITH CODEINE (PARADEINE CO) [Concomitant]
  4. CYCLOBENZAPRINE HCL [Concomitant]
  5. LEXAPRO (ALL OTHER THERAPEUTIC VITAMINS) [Concomitant]
  6. PRENATAL VITAMINS (PRENATAL VITAMINS) [Concomitant]
  7. ZOFRAN [Concomitant]
  8. ZITHROMAX [Concomitant]
  9. PHENERGAN WITH CODEINE (PHENERGAN WITH CODEINE) [Concomitant]

REACTIONS (2)
  - DRUG EXPOSURE DURING PREGNANCY [None]
  - UNINTENDED PREGNANCY [None]
